FAERS Safety Report 12231277 (Version 2)
Quarter: 2016Q2

REPORT INFORMATION
  Report Type: Spontaneous
  Country: TR (occurrence: TR)
  Receive Date: 20160401
  Receipt Date: 20160428
  Transmission Date: 20160815
  Serious: Yes (Death)
  Sender: FDA-Public Use
  Company Number: TR-PFIZER INC-2016181401

PATIENT
  Age: 23 Year
  Sex: Female

DRUGS (5)
  1. MIDAZOLAM [Suspect]
     Active Substance: MIDAZOLAM\MIDAZOLAM HYDROCHLORIDE
     Indication: COMPLETED SUICIDE
     Dosage: UNK
  2. FLECAINIDE [Suspect]
     Active Substance: FLECAINIDE
     Indication: COMPLETED SUICIDE
     Dosage: UNK (EMPTY BOXES OF 30 TABLETS)
     Route: 048
  3. SOTALOL. [Suspect]
     Active Substance: SOTALOL
     Indication: COMPLETED SUICIDE
     Dosage: UNK (EMPTY BOXES OF 20 TABLETS)
     Route: 048
  4. ATROPINE SULFATE. [Suspect]
     Active Substance: ATROPINE SULFATE
     Indication: COMPLETED SUICIDE
     Dosage: UNK
  5. LIDOCAINE. [Suspect]
     Active Substance: LIDOCAINE
     Indication: COMPLETED SUICIDE
     Dosage: UNK

REACTIONS (6)
  - Coma [Fatal]
  - Completed suicide [Fatal]
  - Overdose [Fatal]
  - Cardiac arrest [Fatal]
  - Cerebral congestion [Fatal]
  - Hyperaemia [Fatal]
